FAERS Safety Report 12669319 (Version 2)
Quarter: 2016Q3

REPORT INFORMATION
  Report Type: Spontaneous
  Country: CA (occurrence: CA)
  Receive Date: 20160819
  Receipt Date: 20160824
  Transmission Date: 20161109
  Serious: Yes (Other)
  Sender: FDA-Public Use
  Company Number: CA-PFIZER INC-2016386597

PATIENT
  Age: 66 Year
  Sex: Male

DRUGS (3)
  1. METHOTREXATE SODIUM. [Suspect]
     Active Substance: METHOTREXATE SODIUM
     Indication: RHEUMATOID ARTHRITIS
     Dosage: 25 MG, WEEKLY
     Route: 058
     Dates: start: 201404, end: 201408
  2. SULFASALAZINE. [Suspect]
     Active Substance: SULFASALAZINE
     Indication: RHEUMATOID ARTHRITIS
     Dosage: 1000 MG, 2X/DAY
     Route: 048
     Dates: start: 201406, end: 201407
  3. ARAVA [Suspect]
     Active Substance: LEFLUNOMIDE
     Dosage: 10 MG, UNK
     Dates: start: 201408, end: 201408

REACTIONS (3)
  - Lung infection [Unknown]
  - Interstitial lung disease [Unknown]
  - Drug intolerance [Unknown]
